FAERS Safety Report 14653309 (Version 1)
Quarter: 2018Q1

REPORT INFORMATION
  Report Type: Spontaneous
  Country: FR (occurrence: FR)
  Receive Date: 20180319
  Receipt Date: 20180319
  Transmission Date: 20180509
  Serious: Yes (Other)
  Sender: FDA-Public Use
  Company Number: FR-MERCK KGAA-2044038

PATIENT
  Age: 43 Year
  Sex: Female

DRUGS (1)
  1. NOVOTHYROX [Suspect]
     Active Substance: LEVOTHYROXINE SODIUM
     Indication: PRODUCT USED FOR UNKNOWN INDICATION

REACTIONS (18)
  - Sexual dysfunction [None]
  - Mood swings [Recovering/Resolving]
  - Verbal abuse [None]
  - Glossodynia [Recovered/Resolved]
  - Impulsive behaviour [None]
  - Abnormal behaviour [None]
  - Headache [None]
  - Decreased immune responsiveness [None]
  - Influenza [None]
  - Tinea versicolour [None]
  - Depression [None]
  - Loss of personal independence in daily activities [None]
  - Somnolence [None]
  - Genital herpes [None]
  - Onychomycosis [None]
  - Alopecia [None]
  - Skin discolouration [None]
  - Fatigue [Recovered/Resolved]

NARRATIVE: CASE EVENT DATE: 201706
